FAERS Safety Report 7153217-X (Version None)
Quarter: 2010Q4

REPORT INFORMATION
  Report Type: 
  Country: None (occurrence: None)
  Receive Date: 20101213
  Receipt Date: 20101208
  Transmission Date: 20110411
  Serious: Yes (Life-Threatening)
  Sender: FDA-Public Use
  Company Number: US-ROCHE-712190

PATIENT
  Sex: Female

DRUGS (4)
  1. TOCILIZUMAB [Suspect]
     Indication: RHEUMATOID ARTHRITIS
     Dosage: DRUG PERMANENTLY DISCONTINUED, LAST DOSE PRIOR TO SAE 17 MAY 2010.
     Route: 042
     Dates: start: 20090730, end: 20100614
  2. METHOTREXATE [Suspect]
     Indication: RHEUMATOID ARTHRITIS
     Dosage: DRUG PERMANENTLY DISCONTINUED
     Route: 048
     Dates: start: 20090730, end: 20100614
  3. FOLIC ACID [Concomitant]
  4. LOPID [Concomitant]
     Dates: start: 20100419

REACTIONS (1)
  - BREAST CANCER [None]
